FAERS Safety Report 5161515-4 (Version None)
Quarter: 2006Q4

REPORT INFORMATION
  Report Type: 
  Country: None (occurrence: None)
  Receive Date: 20061130
  Receipt Date: 20060829
  Transmission Date: 20070319
  Serious: No
  Sender: FDA-Public Use
  Company Number: US-GLAXOSMITHKLINE-A0618474A

PATIENT
  Sex: Female

DRUGS (5)
  1. WELLBUTRIN XL [Suspect]
     Indication: DEPRESSION
     Dosage: 300MG PER DAY
     Route: 048
     Dates: start: 20030101
  2. ALLEGRA [Concomitant]
  3. XANAX [Concomitant]
  4. THYROID TAB [Concomitant]
  5. AROMASIN [Concomitant]

REACTIONS (6)
  - BLOOD PRESSURE INCREASED [None]
  - DEPRESSION [None]
  - POLLAKIURIA [None]
  - TINNITUS [None]
  - WEIGHT DECREASED [None]
  - WEIGHT INCREASED [None]
